FAERS Safety Report 5404324-0 (Version None)
Quarter: 2007Q3

REPORT INFORMATION
  Report Type: 
  Country: None (occurrence: None)
  Receive Date: 20070713
  Receipt Date: 20061117
  Transmission Date: 20080115
  Serious: Yes (Hospitalization)
  Sender: FDA-Public Use
  Company Number: REM_00300_2006

PATIENT
  Age: 45 Year
  Sex: Male
  Weight: 107.7 kg

DRUGS (10)
  1. REMODULIN [Suspect]
     Indication: PULMONARY HYPERTENSION
     Dosage: 18 NG/KG/MIN CONTINUOUS IV
     Route: 042
     Dates: start: 20050101
  2. LASIX [Concomitant]
  3. POTASSIUM CHLORIDE [Concomitant]
  4. ZAROXOLYN [Concomitant]
  5. CORDARONE [Concomitant]
  6. PREVACID [Concomitant]
  7. MAGNESIUM OXIDE [Concomitant]
  8. COLACE [Concomitant]
  9. SPIRONOLACTONE [Concomitant]
  10. WARFARIN SODIUM [Concomitant]

REACTIONS (1)
  - CATHETER SEPSIS [None]
